FAERS Safety Report 7544677-0 (Version None)
Quarter: 2011Q2

REPORT INFORMATION
  Report Type: 
  Country: None (occurrence: None)
  Receive Date: 20110614
  Receipt Date: 20110603
  Transmission Date: 20111010
  Serious: No
  Sender: FDA-Public Use
  Company Number: US-BIOGENIDEC-2011BI020695

PATIENT
  Age: 62 Year
  Sex: Male

DRUGS (3)
  1. TYSABRI [Suspect]
     Indication: MULTIPLE SCLEROSIS
     Route: 042
     Dates: start: 20110518
  2. TYSABRI [Suspect]
     Route: 042
     Dates: start: 20070820, end: 20080825
  3. AVONEX [Concomitant]
     Indication: MULTIPLE SCLEROSIS
     Route: 030
     Dates: start: 19951101

REACTIONS (3)
  - HYPOAESTHESIA [None]
  - MEMORY IMPAIRMENT [None]
  - GAIT DISTURBANCE [None]
